FAERS Safety Report 7963744-0 (Version None)
Quarter: 2011Q4

REPORT INFORMATION
  Report Type: 
  Country: None (occurrence: None)
  Receive Date: 20111208
  Receipt Date: 20111114
  Transmission Date: 20120403
  Serious: No
  Sender: FDA-Public Use
  Company Number: US-BAYER-2011-109995

PATIENT
  Age: 27 Year
  Sex: Female

DRUGS (3)
  1. MIRENA [Suspect]
     Dosage: 20 ?G/H, CONT
     Route: 015
     Dates: start: 20111109, end: 20111109
  2. CYTOTEC [Concomitant]
     Indication: PREMEDICATION
     Dosage: UNK
     Dates: start: 20111108, end: 20111108
  3. IBUPROFEN [Concomitant]
     Dosage: 600 UNK, ONCE
     Dates: start: 20111109, end: 20111109

REACTIONS (4)
  - COMPLICATION OF DEVICE INSERTION [None]
  - ANXIETY [None]
  - DEVICE DIFFICULT TO USE [None]
  - POST PROCEDURAL DISCOMFORT [None]
